FAERS Safety Report 13008462 (Version 2)
Quarter: 2017Q2

REPORT INFORMATION
  Report Type: Spontaneous
  Country: US (occurrence: US)
  Receive Date: 20161208
  Receipt Date: 20170426
  Transmission Date: 20170830
  Serious: No
  Sender: FDA-Public Use
  Company Number: US-TEVA-717738ACC

PATIENT
  Age: 34 Year
  Sex: Female
  Weight: 50.85 kg

DRUGS (2)
  1. PARAGARD T 380A [Suspect]
     Active Substance: COPPER
     Indication: CONTRACEPTION
     Dates: start: 20161027, end: 20161123
  2. PARAGARD T 380A [Suspect]
     Active Substance: COPPER
     Dates: start: 20161123

REACTIONS (2)
  - Muscle spasms [Recovered/Resolved]
  - Device expulsion [Recovered/Resolved]

NARRATIVE: CASE EVENT DATE: 20161027
